FAERS Safety Report 17869849 (Version 2)
Quarter: 2020Q3

REPORT INFORMATION
  Report Type: Report from Study
  Country: UG (occurrence: UG)
  Receive Date: 20200608
  Receipt Date: 20200701
  Transmission Date: 20201103
  Serious: Yes (Death)
  Sender: FDA-Public Use
  Company Number: UG-ROCHE-2614876

PATIENT
  Age: 64 Year
  Sex: Male
  Weight: 68 kg

DRUGS (8)
  1. CYCLOPHOSPHAMIDE. [Suspect]
     Active Substance: CYCLOPHOSPHAMIDE
     Indication: DIFFUSE LARGE B-CELL LYMPHOMA
     Dosage: STANDARD DOSE
     Route: 042
     Dates: start: 20200212, end: 20200520
  2. ONDANSETRON [Concomitant]
     Active Substance: ONDANSETRON
     Route: 048
     Dates: start: 20200520, end: 20200524
  3. DOXORUBICIN [Suspect]
     Active Substance: DOXORUBICIN
     Indication: DIFFUSE LARGE B-CELL LYMPHOMA
     Dosage: STANDARD DOSE
     Route: 042
     Dates: start: 20200212, end: 20200520
  4. VINCRISTINE [Suspect]
     Active Substance: VINCRISTINE
     Indication: DIFFUSE LARGE B-CELL LYMPHOMA
     Dosage: STANDARD DOSE
     Route: 042
     Dates: start: 20200212, end: 20200520
  5. PEGFILGRASTIM [Concomitant]
     Active Substance: PEGFILGRASTIM
     Route: 058
     Dates: start: 20200520
  6. PANTOPRAZOLE [Concomitant]
     Active Substance: PANTOPRAZOLE
     Dosage: DOSE: 20/10 MG
     Route: 065
     Dates: start: 20200520, end: 20200527
  7. RITUXIMAB. [Suspect]
     Active Substance: RITUXIMAB
     Indication: DIFFUSE LARGE B-CELL LYMPHOMA
     Route: 058
     Dates: start: 20200212, end: 20200520
  8. PREDNISOLONE. [Suspect]
     Active Substance: PREDNISOLONE
     Indication: DIFFUSE LARGE B-CELL LYMPHOMA
     Dosage: STANDARD DOSE
     Route: 042
     Dates: start: 20200212, end: 20200520

REACTIONS (2)
  - Abdominal pain [Fatal]
  - Colitis [Fatal]

NARRATIVE: CASE EVENT DATE: 20200527
